FAERS Safety Report 8502508-6 (Version None)
Quarter: 2012Q3

REPORT INFORMATION
  Report Type: 
  Country: None (occurrence: None)
  Receive Date: 20120711
  Receipt Date: 20120703
  Transmission Date: 20120928
  Serious: Yes (Hospitalization, Other)
  Sender: FDA-Public Use
  Company Number: MX-SANOFI-AVENTIS-2011SA071822

PATIENT
  Age: 59 Year
  Sex: Male
  Weight: 92 kg

DRUGS (6)
  1. TRAMADOL HCL [Concomitant]
     Route: 048
     Dates: start: 20100101
  2. LYRICA [Concomitant]
     Route: 048
     Dates: start: 20100101
  3. METFORMIN HCL [Concomitant]
     Indication: TYPE 2 DIABETES MELLITUS
     Route: 048
  4. HUMALOG [Concomitant]
     Indication: TYPE 2 DIABETES MELLITUS
     Dosage: 6 IU-8 IU IN CASE OF GLUCOSE LEVELS OVER 180 MG/DL- 6 IU OVER 180 MG/DL AND 8 IU OVER 200 MG/DL
     Route: 058
     Dates: start: 20120101
  5. LANTUS [Suspect]
     Indication: TYPE 2 DIABETES MELLITUS
     Route: 058
  6. LANTUS [Suspect]
     Dosage: 30 IU IN MORNING AND 30 IU AT NIGHT
     Route: 058

REACTIONS (9)
  - NEUROPATHY PERIPHERAL [None]
  - DIZZINESS [None]
  - NAUSEA [None]
  - WEIGHT DECREASED [None]
  - APPENDICITIS [None]
  - ABDOMINAL PAIN [None]
  - HYPERGLYCAEMIA [None]
  - ACCIDENT AT WORK [None]
  - DRUG ADMINISTRATION ERROR [None]
